FAERS Safety Report 10211341 (Version 1)
Quarter: 2014Q2

REPORT INFORMATION
  Report Type: Spontaneous
  Country: US (occurrence: None)
  Receive Date: 20140530
  Receipt Date: 20140530
  Transmission Date: 20141212
  Serious: Yes (Life-Threatening, Disabling)
  Sender: FDA-Public Use
  Company Number: None

PATIENT
  Age: 47 Year
  Sex: Female
  Weight: 81.65 kg

DRUGS (1)
  1. NUVARING MERCK [Suspect]
     Indication: MENSTRUATION IRREGULAR
     Dosage: ONE MONTHLY, MONTHLY, VAGINAL
     Route: 067
     Dates: start: 20130813, end: 20140219

REACTIONS (1)
  - Pulmonary embolism [None]
